FAERS Safety Report 12831388 (Version 3)
Quarter: 2016Q4

REPORT INFORMATION
  Report Type: Spontaneous
  Country: US (occurrence: US)
  Receive Date: 20161008
  Receipt Date: 20161130
  Transmission Date: 20170207
  Serious: Yes (Other)
  Sender: FDA-Public Use
  Company Number: US-AMGEN-USASP2016135540

PATIENT
  Sex: Female

DRUGS (10)
  1. FEMARA [Concomitant]
     Active Substance: LETROZOLE
  2. TAXOTERE [Concomitant]
     Active Substance: DOCETAXEL
  3. AROMASIN [Concomitant]
     Active Substance: EXEMESTANE
  4. ADRIAMYCIN [Concomitant]
     Active Substance: DOXORUBICIN HYDROCHLORIDE
  5. FASLODEX [Concomitant]
     Active Substance: FULVESTRANT
  6. XGEVA [Suspect]
     Active Substance: DENOSUMAB
     Indication: PRODUCT USED FOR UNKNOWN INDICATION
     Dosage: UNK
     Route: 065
  7. ZOMETA [Suspect]
     Active Substance: ZOLEDRONIC ACID
     Indication: PRODUCT USED FOR UNKNOWN INDICATION
     Route: 065
  8. CYCLOPHOSPHAMIDE. [Concomitant]
     Active Substance: CYCLOPHOSPHAMIDE
  9. LETROZOLE. [Concomitant]
     Active Substance: LETROZOLE
  10. IBRANCE [Concomitant]
     Active Substance: PALBOCICLIB

REACTIONS (4)
  - Malignant neoplasm progression [Unknown]
  - Osteonecrosis of jaw [Recovered/Resolved]
  - Adverse event [Unknown]
  - Metastases to bone [Recovered/Resolved]

NARRATIVE: CASE EVENT DATE: 20110729
